FAERS Safety Report 4453811-0 (Version None)
Quarter: 2004Q3

REPORT INFORMATION
  Report Type: 
  Country: None (occurrence: None)
  Receive Date: 20040920
  Receipt Date: 20040908
  Transmission Date: 20050211
  Serious: Yes (Hospitalization)
  Sender: FDA-Public Use
  Company Number: US-BRISTOL-MYERS SQUIBB COMPANY-12704656

PATIENT
  Age: 34 Year
  Sex: Female

DRUGS (2)
  1. SERZONE [Suspect]
     Dates: start: 19990125, end: 20011106
  2. RISPERDAL [Concomitant]

REACTIONS (13)
  - BREAST MASS [None]
  - CYST [None]
  - DUODENITIS [None]
  - FACIAL PALSY [None]
  - GAMMA-GLUTAMYLTRANSFERASE INCREASED [None]
  - GASTRITIS [None]
  - HALLUCINATION, AUDITORY [None]
  - HEMIPARESIS [None]
  - HYPERSENSITIVITY [None]
  - INCONTINENCE [None]
  - LIVER FUNCTION TEST ABNORMAL [None]
  - OESOPHAGEAL CANDIDIASIS [None]
  - VAGINITIS ATROPHIC [None]
